APPROVED DRUG PRODUCT: LUTATHERA
Active Ingredient: LUTETIUM LU 177 DOTATATE
Strength: 10mCi/ML
Dosage Form/Route: SOLUTION;INTRAVENOUS
Application: N208700 | Product #001
Applicant: ADVANCED ACCELERATOR APPLICATIONS USA INC
Approved: Jan 26, 2018 | RLD: Yes | RS: Yes | Type: RX

PATENTS:
Patent 12168063 | Expires: Jul 25, 2038
Patent 12415003 | Expires: Jul 25, 2038
Patent 12491272 | Expires: Jul 25, 2038
Patent 12144873 | Expires: Jul 25, 2038
Patent 12151003 | Expires: Jul 25, 2038
Patent 12161732 | Expires: Jul 25, 2038
Patent 10596278 | Expires: Jul 25, 2038
Patent 10596276 | Expires: Jul 25, 2038
Patent 11904027 | Expires: Jul 25, 2038
Patent 12415003*PED | Expires: Jan 25, 2039
Patent 12144873*PED | Expires: Jan 25, 2039
Patent 12151003*PED | Expires: Jan 25, 2039
Patent 12491272*PED | Expires: Jan 25, 2039
Patent 10596278*PED | Expires: Jan 25, 2039
Patent 10596276*PED | Expires: Jan 25, 2039
Patent 12161732*PED | Expires: Jan 25, 2039
Patent 11904027*PED | Expires: Jan 25, 2039
Patent 12168063*PED | Expires: Jan 25, 2039

EXCLUSIVITY:
Code: NPP | Date: Apr 23, 2027
Code: ODE-479 | Date: Apr 23, 2031
Code: PED | Date: Oct 23, 2027
Code: PED | Date: Oct 23, 2031